FAERS Safety Report 8445388-X (Version None)
Quarter: 2012Q2

REPORT INFORMATION
  Report Type: 
  Country: None (occurrence: None)
  Receive Date: 20120618
  Receipt Date: 20110915
  Transmission Date: 20120825
  Serious: No
  Sender: FDA-Public Use
  Company Number: US-TEVA-2011004941

PATIENT
  Sex: Female
  Weight: 77.18 kg

DRUGS (1)
  1. FENTORA [Suspect]
     Indication: BREAKTHROUGH PAIN
     Route: 002
     Dates: start: 20090101

REACTIONS (3)
  - MALAISE [None]
  - DRUG PRESCRIBING ERROR [None]
  - DRUG INEFFECTIVE [None]
